FAERS Safety Report 20116336 (Version 1)
Quarter: 2021Q4

REPORT INFORMATION
  Report Type: Spontaneous
  Country: CA (occurrence: CA)
  Receive Date: 20211126
  Receipt Date: 20211126
  Transmission Date: 20220304
  Serious: Yes (Other)
  Sender: FDA-Public Use
  Company Number: CA-SAMSUNG BIOEPIS-SB-2021-27340

PATIENT
  Age: 89 Year
  Sex: Female

DRUGS (1)
  1. INFLIXIMAB [Suspect]
     Active Substance: INFLIXIMAB
     Indication: Rheumatoid arthritis
     Route: 042

REACTIONS (3)
  - Condition aggravated [Not Recovered/Not Resolved]
  - Cystitis [Not Recovered/Not Resolved]
  - Joint injury [Not Recovered/Not Resolved]
